FAERS Safety Report 10332188 (Version 2)
Quarter: 2018Q1

REPORT INFORMATION
  Report Type: Report from Study
  Country: US (occurrence: US)
  Receive Date: 20140722
  Receipt Date: 20180327
  Transmission Date: 20180508
  Serious: Yes (Hospitalization, Other)
  Sender: FDA-Public Use
  Company Number: US-ROCHE-1437582

PATIENT
  Sex: Male
  Weight: 35.7 kg

DRUGS (16)
  1. NUTROPIN AQ [Concomitant]
     Active Substance: SOMATROPIN
     Route: 065
  2. FLONASE [Concomitant]
     Active Substance: FLUTICASONE PROPIONATE
     Route: 065
  3. NUTROPIN AQ [Suspect]
     Active Substance: SOMATROPIN
     Route: 058
  4. PULMOZYME [Suspect]
     Active Substance: DORNASE ALFA
     Indication: PRODUCT USED FOR UNKNOWN INDICATION
     Route: 045
  5. ZYRTEC [Concomitant]
     Active Substance: CETIRIZINE HYDROCHLORIDE
     Route: 048
  6. PULMICORT TURBUHALER [Concomitant]
     Active Substance: BUDESONIDE
     Route: 045
  7. VITAMIN D3 [Concomitant]
     Active Substance: CHOLECALCIFEROL
     Route: 048
  8. NUTROPIN AQ [Suspect]
     Active Substance: SOMATROPIN
     Indication: GROWTH HORMONE DEFICIENCY
     Route: 058
     Dates: start: 200502
  9. ATROVENT [Concomitant]
     Active Substance: IPRATROPIUM BROMIDE
  10. TESTOSTERONE CYPIONATE. [Concomitant]
     Active Substance: TESTOSTERONE CYPIONATE
     Route: 030
  11. BACTRIM [Concomitant]
     Active Substance: SULFAMETHOXAZOLE\TRIMETHOPRIM
     Route: 048
  12. GAMMAGARD [Concomitant]
     Active Substance: HUMAN IMMUNOGLOBULIN G
     Dosage: 10 GM/100ML SOLUTION - IV EVERY 3 WEEKS
     Route: 042
  13. NUTROPIN AQ [Suspect]
     Active Substance: SOMATROPIN
     Route: 058
  14. ZAPONEX [Concomitant]
     Active Substance: CLOZAPINE
  15. PREVACID [Concomitant]
     Active Substance: LANSOPRAZOLE
  16. IVIG [Concomitant]
     Active Substance: HUMAN IMMUNOGLOBULIN G
     Route: 065

REACTIONS (19)
  - Myalgia [Unknown]
  - Malnutrition [Unknown]
  - Headache [Unknown]
  - Nocturia [Unknown]
  - Deafness [Unknown]
  - Anosmia [Unknown]
  - Fatigue [Unknown]
  - Dry eye [Unknown]
  - Crepitations [Unknown]
  - Cough [Unknown]
  - Diarrhoea [Recovering/Resolving]
  - Growth retardation [Unknown]
  - Polydipsia [Unknown]
  - Dyspnoea [Unknown]
  - Pyrexia [Unknown]
  - Dysphagia [Unknown]
  - Sleep disorder [Unknown]
  - Dehydration [Unknown]
  - Arthralgia [Unknown]
